FAERS Safety Report 7463695-4 (Version None)
Quarter: 2011Q1

REPORT INFORMATION
  Report Type: 
  Country: None (occurrence: None)
  Receive Date: 20110302
  Receipt Date: 20100727
  Transmission Date: 20110831
  Serious: Yes (Hospitalization)
  Sender: FDA-Public Use
  Company Number: 163-21880-10040841

PATIENT
  Age: 59 Year
  Sex: Female
  Weight: 63.9572 kg

DRUGS (14)
  1. LORTAB (VICODIN) [Concomitant]
  2. REVLIMID [Suspect]
     Indication: MULTIPLE MYELOMA
     Dosage: 25 MG, DAILY EVERY 28 DAYS, PO
     Route: 048
     Dates: start: 20100317, end: 20100519
  3. TESSALON [Concomitant]
  4. SYMBICORT (SYMBICORT TURBUHALER ^DRACO^) [Concomitant]
  5. DILAUDID [Concomitant]
  6. AMBIEN [Concomitant]
  7. MEDROL DOSEPAK (METHYLPREDNISOLONE) [Concomitant]
  8. MIRALAX [Concomitant]
  9. DILTIAZEM ER (DILTIAZEM HYDROCHLORIDE) [Concomitant]
  10. ANTIBIOTICS (ANTIBIOTICS) (UNKNOWN) [Suspect]
     Indication: CONDITION AGGRAVATED
  11. ANTIBIOTICS (ANTIBIOTICS) (UNKNOWN) [Suspect]
     Indication: CHRONIC OBSTRUCTIVE PULMONARY DISEASE
  12. XOPENEX [Concomitant]
  13. ATIVAN [Concomitant]
  14. OMEPRAZOLE [Concomitant]

REACTIONS (7)
  - PNEUMONIA INFLUENZAL [None]
  - HYPONATRAEMIA [None]
  - ANAEMIA [None]
  - FUNGAL SKIN INFECTION [None]
  - CHRONIC OBSTRUCTIVE PULMONARY DISEASE [None]
  - BRONCHITIS [None]
  - RASH ERYTHEMATOUS [None]
